FAERS Safety Report 10047176 (Version 2)
Quarter: 2014Q1

REPORT INFORMATION
  Report Type: Spontaneous
  Country: US (occurrence: US)
  Receive Date: 20140331
  Receipt Date: 20140331
  Transmission Date: 20141002
  Serious: No
  Sender: FDA-Public Use
  Company Number: US-MYLANLABS-2013S1016483

PATIENT
  Sex: Male

DRUGS (8)
  1. FENTANYL TRANSDERMAL SYSTEM [Suspect]
     Indication: BACK PAIN
     Dosage: Q72HR
     Route: 062
     Dates: start: 201303
  2. WARFARIN [Concomitant]
     Indication: EMBOLISM
  3. ABILIFY [Concomitant]
     Indication: DEPRESSION
  4. OMEPRAZOLE [Concomitant]
     Indication: GASTROOESOPHAGEAL REFLUX DISEASE
  5. BUPROPION [Concomitant]
     Indication: DEPRESSION
  6. PREGABALIN [Concomitant]
     Indication: PAIN
  7. DULOXETINE [Concomitant]
     Indication: DEPRESSION
  8. QUETIAPINE [Concomitant]
     Indication: INSOMNIA

REACTIONS (4)
  - Drug effect decreased [Not Recovered/Not Resolved]
  - Back pain [Not Recovered/Not Resolved]
  - Incorrect drug administration duration [Not Recovered/Not Resolved]
  - Therapeutic response unexpected [Not Recovered/Not Resolved]
